FAERS Safety Report 6582035-6 (Version None)
Quarter: 2010Q1

REPORT INFORMATION
  Report Type: 
  Country: None (occurrence: None)
  Receive Date: 20100215
  Receipt Date: 20100203
  Transmission Date: 20100710
  Serious: Yes (Other)
  Sender: FDA-Public Use
  Company Number: US-AMGEN-QUU390518

PATIENT
  Sex: Male

DRUGS (2)
  1. NPLATE [Suspect]
     Indication: IDIOPATHIC THROMBOCYTOPENIC PURPURA
     Dates: start: 20090701, end: 20091207
  2. PLATELETS [Concomitant]
     Dates: start: 20080601

REACTIONS (2)
  - LYMPHOMA [None]
  - THERAPEUTIC RESPONSE DECREASED [None]
